FAERS Safety Report 10547654 (Version 1)
Quarter: 2014Q4

REPORT INFORMATION
  Report Type: Spontaneous
  Country: US (occurrence: None)
  Receive Date: 20141015
  Receipt Date: 20141015
  Transmission Date: 20150529
  Serious: No
  Sender: FDA-Public Use
  Company Number: 2013US003485

PATIENT
  Age: 35 Year
  Sex: Female
  Weight: 110 kg

DRUGS (6)
  1. AUGMENTIN ( AMOXICILLIN, CLAVULANIC ACID) [Concomitant]
  2. VALIUM ( DIAZEPAM) [Concomitant]
  3. MIRALAX ( MACROGOL) [Concomitant]
  4. ICLUSIG [Suspect]
     Active Substance: PONATINIB
     Indication: CHRONIC MYELOID LEUKAEMIA
     Dosage: 45 MG, QD, ORAL
     Route: 048
     Dates: start: 20130718
  5. VICODIN ( HYDROCODONE BITARTRATE, PARACETAMOL) [Concomitant]
  6. ALBUTEROL ( SALBUTAMOL SULFATE) [Concomitant]

REACTIONS (4)
  - Nasopharyngitis [None]
  - Dyspnoea [None]
  - Fatigue [None]
  - Malaise [None]
